FAERS Safety Report 14165175 (Version 1)
Quarter: 2017Q4

REPORT INFORMATION
  Report Type: Spontaneous
  Country: GB (occurrence: GB)
  Receive Date: 20171107
  Receipt Date: 20171107
  Transmission Date: 20180321
  Serious: Yes (Death, Hospitalization)
  Sender: FDA-Public Use
  Company Number: GB-DRREDDYS-GER/UKI/17/0092261

PATIENT
  Age: 70 Year
  Sex: Female

DRUGS (4)
  1. SERTRALINE [Suspect]
     Active Substance: SERTRALINE HYDROCHLORIDE
     Route: 048
     Dates: start: 20170602
  2. LETROZOLE. [Concomitant]
     Active Substance: LETROZOLE
     Indication: PRODUCT USED FOR UNKNOWN INDICATION
  3. SERTRALINE [Suspect]
     Active Substance: SERTRALINE HYDROCHLORIDE
     Indication: MAJOR DEPRESSION
     Route: 048
     Dates: start: 201510, end: 20170602
  4. PRIADEL [Suspect]
     Active Substance: LITHIUM CARBONATE
     Indication: MAJOR DEPRESSION
     Route: 048
     Dates: start: 201510

REACTIONS (4)
  - Brain injury [Fatal]
  - Arrhythmia [Not Recovered/Not Resolved]
  - Cardiac arrest [Not Recovered/Not Resolved]
  - Long QT syndrome [Not Recovered/Not Resolved]

NARRATIVE: CASE EVENT DATE: 20170605
